FAERS Safety Report 19066428 (Version 1)
Quarter: 2021Q1

REPORT INFORMATION
  Report Type: Spontaneous
  Country: US (occurrence: US)
  Receive Date: 20210328
  Receipt Date: 20210328
  Transmission Date: 20210420
  Serious: Yes (Hospitalization)
  Sender: FDA-Public Use
  Company Number: US-TEVA-2021-US-1893147

PATIENT
  Age: 74 Year
  Sex: Female

DRUGS (1)
  1. CEPHALEXIN TEVA [Suspect]
     Active Substance: CEPHALEXIN
     Indication: PROPHYLAXIS
     Route: 065

REACTIONS (5)
  - Bronchitis [Unknown]
  - Expired product administered [Unknown]
  - Product storage error [Unknown]
  - Product use in unapproved indication [Unknown]
  - Pneumonia [Unknown]

NARRATIVE: CASE EVENT DATE: 2005
